FAERS Safety Report 15491558 (Version 1)
Quarter: 2018Q4

REPORT INFORMATION
  Report Type: Spontaneous
  Country: RU (occurrence: RU)
  Receive Date: 20181012
  Receipt Date: 20181012
  Transmission Date: 20190205
  Serious: Yes (Other)
  Sender: FDA-Public Use
  Company Number: RU-ABBVIE-18S-251-2510985-00

PATIENT
  Age: 48 Year
  Sex: Male
  Weight: 65 kg

DRUGS (9)
  1. ABACAVIR. [Suspect]
     Active Substance: ABACAVIR
     Indication: HIV INFECTION
     Route: 048
     Dates: start: 20160401, end: 20160825
  2. AMX/CLAV [Concomitant]
     Indication: PULMONARY TUBERCULOSIS
  3. LAMIVUDINE. [Suspect]
     Active Substance: LAMIVUDINE
     Indication: HIV INFECTION
     Route: 048
     Dates: start: 20160401, end: 20160825
  4. CFZ [Concomitant]
     Indication: PULMONARY TUBERCULOSIS
     Dates: start: 20151002
  5. DARUNAVIR [Suspect]
     Active Substance: DARUNAVIR
     Indication: HIV INFECTION
     Route: 048
     Dates: start: 20160401, end: 20160825
  6. RITONAVIR. [Suspect]
     Active Substance: RITONAVIR
     Indication: HIV INFECTION
     Route: 048
     Dates: start: 20160401, end: 20160825
  7. DELTYBA [Suspect]
     Active Substance: DELAMANID
     Indication: PULMONARY TUBERCULOSIS
     Route: 048
     Dates: start: 20151002, end: 20160825
  8. LZD [Concomitant]
     Indication: PULMONARY TUBERCULOSIS
     Dates: start: 20151002, end: 20160825
  9. IMP [Concomitant]
     Active Substance: UNSPECIFIED INGREDIENT
     Indication: PULMONARY TUBERCULOSIS

REACTIONS (5)
  - Decreased appetite [Unknown]
  - Refusal of treatment by patient [Unknown]
  - Nausea [Unknown]
  - Culture positive [Unknown]
  - Drug-induced liver injury [Unknown]

NARRATIVE: CASE EVENT DATE: 2016
